FAERS Safety Report 16548577 (Version 1)
Quarter: 2019Q3

REPORT INFORMATION
  Report Type: Spontaneous
  Country: US (occurrence: US)
  Receive Date: 20190709
  Receipt Date: 20190709
  Transmission Date: 20191004
  Serious: No
  Sender: FDA-Public Use
  Company Number: US-PFIZER INC-2018104423

PATIENT
  Age: 65 Year
  Sex: Female
  Weight: 73 kg

DRUGS (1)
  1. DOXYCYCLINE HYCLATE. [Suspect]
     Active Substance: DOXYCYCLINE HYCLATE
     Indication: BACTERIAL INFECTION
     Dosage: UNK

REACTIONS (15)
  - Swelling [Unknown]
  - Discomfort [Unknown]
  - Pain [Unknown]
  - Inflammation [Unknown]
  - Sleep disorder [Unknown]
  - Mood altered [Unknown]
  - Sense of oppression [Unknown]
  - Skin exfoliation [Unknown]
  - Fluid retention [Unknown]
  - Irritability [Unknown]
  - Depression [Unknown]
  - Asthenia [Unknown]
  - Rash erythematous [Unknown]
  - Arthralgia [Unknown]
  - Fatigue [Unknown]
